FAERS Safety Report 9153863 (Version 1)
Quarter: 2013Q1

REPORT INFORMATION
  Report Type: Spontaneous
  Country: US (occurrence: US)
  Receive Date: 20130311
  Receipt Date: 20130311
  Transmission Date: 20140127
  Serious: No
  Sender: FDA-Public Use
  Company Number: US-009507513-1303USA003198

PATIENT
  Age: 21 Year
  Sex: Female
  Weight: 47.62 kg

DRUGS (1)
  1. IMPLANON [Suspect]
     Indication: CONTRACEPTION
     Dosage: 3  YEARS
     Route: 059
     Dates: start: 20130214

REACTIONS (5)
  - Implant site pain [Recovering/Resolving]
  - Back pain [Recovering/Resolving]
  - Breast pain [Recovering/Resolving]
  - Arthralgia [Recovering/Resolving]
  - Mood swings [Recovering/Resolving]
